FAERS Safety Report 10082502 (Version 1)
Quarter: 2014Q2

REPORT INFORMATION
  Report Type: Spontaneous
  Country: US (occurrence: US)
  Receive Date: 20140416
  Receipt Date: 20140416
  Transmission Date: 20141212
  Serious: Yes (Hospitalization)
  Sender: FDA-Public Use
  Company Number: US-B.I. PHARMACEUTICALS,INC./RIDGEFIELD-2014-BI-16943BP

PATIENT
  Age: 80 Year
  Sex: Female
  Weight: 59 kg

DRUGS (3)
  1. COMBIVENT [Suspect]
     Indication: CHRONIC OBSTRUCTIVE PULMONARY DISEASE
     Dosage: STRENGTH: 20 MCG / 100 MCG
     Route: 055
     Dates: start: 201312
  2. ADVAIR [Concomitant]
     Dosage: FORMULATION: INHALATION SPRAY
     Route: 055
  3. THEOPHYLLINE [Concomitant]
     Indication: ASTHMA
     Dosage: 1 ANZ
     Route: 048

REACTIONS (2)
  - Palpitations [Not Recovered/Not Resolved]
  - Heart rate increased [Recovered/Resolved]
